FAERS Safety Report 4484874-4 (Version None)
Quarter: 2004Q3

REPORT INFORMATION
  Report Type: 
  Country: None (occurrence: None)
  Receive Date: 20040921
  Receipt Date: 20030908
  Transmission Date: 20050211
  Serious: Yes (Hospitalization)
  Sender: FDA-Public Use
  Company Number: 163-20785-03090283

PATIENT
  Age: 64 Year
  Sex: Female
  Weight: 90.7194 kg

DRUGS (7)
  1. THALOMID [Suspect]
     Indication: MULTIPLE MYELOMA
     Dosage: 200 MG, DAILY, ORAL
     Route: 048
     Dates: start: 20020401, end: 20020101
  2. DEXAMETHASONE [Suspect]
     Indication: MULTIPLE MYELOMA
     Dosage: 40 MG, DAYS 1-4, 9-12, 17-20/MONTH; 9-12, AND 17-20 OF EVERY MONTH
     Dates: start: 20020401
  3. DEXAMETHASONE [Suspect]
     Indication: MULTIPLE MYELOMA
     Dosage: 40 MG, DAYS 1-4, 9-12, 17-20/MONTH; 9-12, AND 17-20 OF EVERY MONTH
     Dates: start: 20020401
  4. HYDROCHLOROTHIAZIDE [Concomitant]
  5. MULTIVITAMIN [Concomitant]
  6. POTASSIUM CHLORIDE [Concomitant]
  7. CALCIUM (CALCIUM) [Concomitant]

REACTIONS (7)
  - BLOOD GLUCOSE INCREASED [None]
  - DEEP VEIN THROMBOSIS [None]
  - DISEASE PROGRESSION [None]
  - NEUROPATHY PERIPHERAL [None]
  - OEDEMA PERIPHERAL [None]
  - PULMONARY EMBOLISM [None]
  - VENOUS STASIS [None]
